FAERS Safety Report 9358846 (Version 3)
Quarter: 2014Q1

REPORT INFORMATION
  Report Type: Spontaneous
  Country: US (occurrence: US)
  Receive Date: 20130620
  Receipt Date: 20140127
  Transmission Date: 20141002
  Serious: Yes (Other)
  Sender: FDA-Public Use
  Company Number: US-PFIZER INC-2013182741

PATIENT
  Age: 55 Year
  Sex: Female
  Weight: 104 kg

DRUGS (15)
  1. NEURONTIN [Suspect]
     Indication: NEURALGIA
     Dosage: UNK
  2. HYDROCODONE [Concomitant]
     Dosage: UNK
  3. MORPHINE [Concomitant]
     Dosage: UNK
  4. OXYCODONE [Concomitant]
     Dosage: UNK
  5. LIDODERM [Concomitant]
     Dosage: UNK
  6. GLIPIZIDE [Concomitant]
     Indication: DIABETES MELLITUS
     Dosage: 2 DF (2 PILLS), 1X/DAY
  7. METFORMIN [Concomitant]
     Indication: DIABETES MELLITUS
     Dosage: UNK
  8. LEVOTHYROXINE [Concomitant]
     Indication: THYROID HORMONE REPLACEMENT THERAPY
     Dosage: UNK, 1X/DAY
  9. SIMVASTATIN [Concomitant]
     Indication: BLOOD CHOLESTEROL INCREASED
     Dosage: UNK, 1X/DAY
  10. LOSARTAN [Concomitant]
     Indication: HYPERTENSION
     Dosage: UNK, 1X/DAY
  11. POTASSIUM [Concomitant]
     Indication: DIURETIC THERAPY
     Dosage: UNK, 2X/DAY
  12. FUROSEMIDE [Concomitant]
     Indication: DIURETIC THERAPY
     Dosage: 40 MG, 2X/DAY
  13. CALCIUM [Concomitant]
     Dosage: UNK
  14. VITAMIN C [Concomitant]
     Dosage: UNK
  15. MULTIVITAMINS [Concomitant]
     Dosage: UNK

REACTIONS (3)
  - Intervertebral disc disorder [Unknown]
  - Spinal cord compression [Unknown]
  - Drug ineffective [Unknown]
